FAERS Safety Report 9104633 (Version 2)
Quarter: 2013Q2

REPORT INFORMATION
  Report Type: Spontaneous
  Country: US (occurrence: US)
  Receive Date: 20130220
  Receipt Date: 20130426
  Transmission Date: 20140414
  Serious: No
  Sender: FDA-Public Use
  Company Number: US-VERTEX PHARMACEUTICALS INC.-2013-002310

PATIENT
  Age: 35 Year
  Sex: Female
  Weight: 107 kg

DRUGS (3)
  1. INCIVEK [Suspect]
     Indication: HEPATITIS C
     Dosage: 750 MG, TID
     Route: 048
     Dates: start: 20130102, end: 20130213
  2. COPEGUS [Suspect]
     Indication: HEPATITIS C
     Dosage: 600 MG, BID
     Dates: start: 20130102, end: 20130213
  3. PEGASYS [Suspect]
     Indication: HEPATITIS C
     Dosage: 180 ?G, WEEKLY
     Route: 058
     Dates: start: 20130102, end: 20130213

REACTIONS (2)
  - Weight increased [Not Recovered/Not Resolved]
  - Drug ineffective [Unknown]
